FAERS Safety Report 5296166-4 (Version None)
Quarter: 2007Q2

REPORT INFORMATION
  Report Type: 
  Country: None (occurrence: None)
  Receive Date: 20070413
  Receipt Date: 20070402
  Transmission Date: 20071010
  Serious: Yes (Hospitalization)
  Sender: FDA-Public Use
  Company Number: 2007AP01620

PATIENT
  Age: 11923 Day
  Sex: Male
  Weight: 50 kg

DRUGS (2)
  1. ANAPEINE [Suspect]
     Indication: NERVE BLOCK
     Route: 042
     Dates: start: 20070222, end: 20070222
  2. XYLOCAINE [Suspect]
     Indication: NERVE BLOCK
     Route: 042
     Dates: start: 20070222, end: 20070222

REACTIONS (1)
  - DRUG TOXICITY [None]
